FAERS Safety Report 22211212 (Version 1)
Quarter: 2023Q2

REPORT INFORMATION
  Report Type: Spontaneous
  Country: PT (occurrence: PT)
  Receive Date: 20230414
  Receipt Date: 20230414
  Transmission Date: 20230722
  Serious: Yes (Other)
  Sender: FDA-Public Use
  Company Number: PT-INFARMED-F202303-803

PATIENT
  Age: 64 Year
  Sex: Female

DRUGS (5)
  1. DEFLAZACORT [Interacting]
     Active Substance: DEFLAZACORT
     Indication: Product used for unknown indication
     Dosage: 1 X DAY
     Route: 065
  2. CELLCEPT [Suspect]
     Active Substance: MYCOPHENOLATE MOFETIL
     Indication: Pulmonary sarcoidosis
     Dosage: UNK
     Route: 048
     Dates: start: 202301
  3. MYCOPHENOLATE MOFETIL [Suspect]
     Active Substance: MYCOPHENOLATE MOFETIL
     Indication: Pulmonary sarcoidosis
     Dosage: 1000 MILLIGRAM, ONCE A DAY,(1 TABLET OF 500MG EVERY 12 HOURS)
     Route: 048
     Dates: start: 20181030, end: 202301
  4. LEVOTHYROXINE SODIUM [Concomitant]
     Active Substance: LEVOTHYROXINE SODIUM
     Indication: Product used for unknown indication
     Dosage: UNK,(SATURDAY AND SUNDAY)
     Route: 065
  5. LEVOTHYROXINE SODIUM [Concomitant]
     Active Substance: LEVOTHYROXINE SODIUM
     Indication: Product used for unknown indication
     Dosage: UNK,(MONDAY TO FRIDAY)
     Route: 065

REACTIONS (4)
  - Coagulopathy [Not Recovered/Not Resolved]
  - Incision site haemorrhage [Not Recovered/Not Resolved]
  - Drug interaction [Not Recovered/Not Resolved]
  - Off label use [Not Recovered/Not Resolved]

NARRATIVE: CASE EVENT DATE: 20181030
